FAERS Safety Report 6581809-5 (Version None)
Quarter: 2010Q1

REPORT INFORMATION
  Report Type: 
  Country: None (occurrence: None)
  Receive Date: 20100215
  Receipt Date: 20100211
  Transmission Date: 20100710
  Serious: Yes (Death, Other)
  Sender: FDA-Public Use
  Company Number: PHEH2010US02259

PATIENT
  Sex: Female

DRUGS (11)
  1. TEKTURNA [Suspect]
     Indication: HYPERTENSION
     Dosage: 150 MG, QD
     Route: 048
     Dates: start: 20081201, end: 20090401
  2. TEKTURNA [Suspect]
     Dosage: 300 MG, QD
     Route: 048
     Dates: start: 20090401
  3. VICODIN [Concomitant]
  4. AMLODIPINE [Concomitant]
  5. FUROSEMIDE [Concomitant]
  6. MICARDIS [Concomitant]
  7. NEXIUM [Concomitant]
  8. COREG [Concomitant]
  9. PRISTIQ [Concomitant]
  10. LISINOPRIL [Concomitant]
  11. ASPIRIN [Concomitant]
     Dosage: 81 MG, UNK

REACTIONS (7)
  - BLOOD GLUCOSE INCREASED [None]
  - BLOOD PHOSPHORUS INCREASED [None]
  - CARDIAC FAILURE [None]
  - CONGENITAL CYSTIC KIDNEY DISEASE [None]
  - GASTRITIS [None]
  - RENAL FAILURE [None]
  - TREATMENT NONCOMPLIANCE [None]
